FAERS Safety Report 12376309 (Version 5)
Quarter: 2020Q1

REPORT INFORMATION
  Report Type: Spontaneous
  Country: US (occurrence: US)
  Receive Date: 20160517
  Receipt Date: 20200218
  Transmission Date: 20200409
  Serious: No
  Sender: FDA-Public Use
  Company Number: US-PFIZER INC-2016228307

PATIENT
  Age: 71 Year
  Sex: Female

DRUGS (12)
  1. VITAMIN D3 [Concomitant]
     Active Substance: CHOLECALCIFEROL
     Dosage: 2000 MG, 1X/DAY
     Route: 048
  2. LYRICA [Suspect]
     Active Substance: PREGABALIN
     Indication: DIABETIC NEUROPATHY
     Dosage: 100 MG, 3X/DAY
     Route: 048
  3. LYRICA [Suspect]
     Active Substance: PREGABALIN
     Indication: MYALGIA
     Dosage: 75 MG, 3X/DAY
     Route: 048
  4. TRAMADOL HCL [Concomitant]
     Active Substance: TRAMADOL HYDROCHLORIDE
     Dosage: 100 MG, 4X/DAY (50 MG 2 TABLETS ORALLY FOUR TIMES A DAY)
     Route: 048
     Dates: end: 20160131
  5. TOUJEO [Concomitant]
     Active Substance: INSULIN GLARGINE
     Dosage: 50 IU, 1X/DAY (300 UNIT/ML 50 UNITS AS DIRECTED SUBCUTANEOUS ONCE A DAY)
     Route: 058
  6. LYRICA [Suspect]
     Active Substance: PREGABALIN
     Indication: ARTHRALGIA
  7. OMEPRAZOLE. [Concomitant]
     Active Substance: OMEPRAZOLE
     Dosage: 40 MG, 2X/DAY (40 MG 1 CAPSULE ORALLY TWICE A DAY)
     Route: 048
  8. CALCIUM + MAGNESIUM [Concomitant]
     Active Substance: CALCIUM\MAGNESIUM
     Dosage: 1 DF, 1X/DAY
     Route: 048
  9. GABAPENTIN. [Concomitant]
     Active Substance: GABAPENTIN
     Dosage: 400 MG, 3X/DAY (400 MG 1 CAPSULE ORALLY THREE TIMES A DAY)
     Route: 048
  10. LYRICA [Suspect]
     Active Substance: PREGABALIN
     Indication: FIBROMYALGIA
     Dosage: 150 MG, 3X/DAY
     Route: 048
  11. GLIMEPIRIDE. [Concomitant]
     Active Substance: GLIMEPIRIDE
     Dosage: 2 MG, 4X/DAY (2 MG 1 TABLET ORALLY FOUR TIMES A DAY)
     Route: 048
  12. ECOTRIN [Concomitant]
     Active Substance: ASPIRIN
     Dosage: 81 MG, 1X/DAY (: 81 MG 1 TABLET ORALLY ONCE A DAY)
     Route: 048

REACTIONS (1)
  - Pain [Unknown]
